FAERS Safety Report 9320182 (Version 2)
Quarter: 2013Q2

REPORT INFORMATION
  Report Type: Spontaneous
  Country: GB (occurrence: GB)
  Receive Date: 20130530
  Receipt Date: 20130611
  Transmission Date: 20140414
  Serious: Yes (Other)
  Sender: FDA-Public Use
  Company Number: GB-PFIZER INC-2013161880

PATIENT
  Age: 64 Year
  Sex: Female
  Weight: 76 kg

DRUGS (9)
  1. ATORVASTATIN [Suspect]
     Dosage: UNK
  2. PANTOPRAZOLE [Concomitant]
     Indication: HIATUS HERNIA
     Dosage: IN THE MORNING
  3. BENDROFLUAZIDE [Concomitant]
     Indication: FLUID RETENTION
     Dosage: IN THE MORNING
  4. AMLODIPINE [Concomitant]
     Dosage: IN THE MORNING
  5. METFORMIN [Concomitant]
     Dosage: IN THE MORNING AND AT NIGHT
  6. JANUVIA [Concomitant]
     Dosage: IN THE MORNING
  7. ORLISTAT [Concomitant]
     Indication: WEIGHT DECREASED
     Dosage: IN THE MORNING AND AT NIGHT
  8. ATORVASTATIN [Concomitant]
     Dosage: AT NIGHT
  9. TRAMACET [Concomitant]
     Indication: OSTEOARTHRITIS
     Dosage: AT NIGHT, AS REQUIRED

REACTIONS (13)
  - Cough [Recovered/Resolved]
  - Pharyngeal oedema [Recovered/Resolved]
  - Local swelling [Recovered/Resolved]
  - Muscle tightness [Recovered/Resolved]
  - Product substitution issue [Unknown]
  - Swollen tongue [Recovered/Resolved]
  - Product quality issue [Unknown]
  - Paraesthesia oral [Recovered/Resolved]
  - Product coating issue [Unknown]
  - Product size issue [Unknown]
  - Product taste abnormal [Unknown]
  - Paraesthesia oral [Recovered/Resolved]
  - Dysphagia [Unknown]
